FAERS Safety Report 19499519 (Version 4)
Quarter: 2023Q4

REPORT INFORMATION
  Report Type: Other
  Country: CA (occurrence: CA)
  Receive Date: 20210707
  Receipt Date: 20231010
  Transmission Date: 20240110
  Serious: Yes (Hospitalization, Other)
  Sender: FDA-Public Use
  Company Number: CA-002147023-PHHY2019CA138886

PATIENT
  Age: 31 Year
  Sex: Female

DRUGS (14)
  1. XOLAIR [Suspect]
     Active Substance: OMALIZUMAB
     Indication: Chronic spontaneous urticaria
     Route: 058
     Dates: start: 20190613
  2. XOLAIR [Suspect]
     Active Substance: OMALIZUMAB
     Dosage: 300 MG, EVERY 4 WEEKS (150 MG STRENGTH)
     Route: 058
     Dates: start: 20210429
  3. XOLAIR [Suspect]
     Active Substance: OMALIZUMAB
     Dosage: SOLUTION FOR INJECTION IN PRE-FILLED SYRINGE
     Route: 058
     Dates: start: 20220524
  4. XOLAIR [Suspect]
     Active Substance: OMALIZUMAB
     Route: 058
     Dates: start: 20190613
  5. XOLAIR [Suspect]
     Active Substance: OMALIZUMAB
     Route: 058
  6. XOLAIR [Suspect]
     Active Substance: OMALIZUMAB
     Route: 058
     Dates: start: 20230615
  7. CETIRIZINE HYDROCHLORIDE [Concomitant]
     Active Substance: CETIRIZINE HYDROCHLORIDE
     Indication: Product used for unknown indication
     Dosage: 1 DF, BID
     Route: 048
     Dates: start: 201901
  8. BENADRYL [Concomitant]
     Active Substance: DIPHENHYDRAMINE HYDROCHLORIDE
     Indication: Product used for unknown indication
     Dosage: 2 DF, PRN
     Route: 048
     Dates: start: 2016
  9. BETADERM [Concomitant]
     Active Substance: BETAMETHASONE VALERATE
     Indication: Skin disorder
     Dosage: 3 DF, QD
     Route: 061
     Dates: start: 2014
  10. PROTOPIC [Concomitant]
     Active Substance: TACROLIMUS
     Indication: Chronic spontaneous urticaria
     Dosage: 2 DF, QD
     Route: 061
     Dates: start: 201405
  11. LAMOTRIGINE [Concomitant]
     Active Substance: LAMOTRIGINE
     Indication: Product used for unknown indication
     Dosage: UNK
  12. BILASTINE [Concomitant]
     Active Substance: BILASTINE
     Indication: Product used for unknown indication
     Dosage: UNK (STRENGTH: 1)
  13. SERTRALINE [Concomitant]
     Active Substance: SERTRALINE HYDROCHLORIDE
     Indication: Product used for unknown indication
     Dosage: UNK
  14. CLONAZEPAM [Concomitant]
     Active Substance: CLONAZEPAM
     Indication: Product used for unknown indication
     Dosage: UNK

REACTIONS (18)
  - Infection [Not Recovered/Not Resolved]
  - Cystitis [Unknown]
  - Syncope [Unknown]
  - Nausea [Unknown]
  - Malaise [Unknown]
  - Yellow skin [Unknown]
  - Abdominal pain [Unknown]
  - Vomiting [Unknown]
  - Gastrointestinal disorder [Recovering/Resolving]
  - Varicella [Recovering/Resolving]
  - Localised infection [Not Recovered/Not Resolved]
  - Migraine [Unknown]
  - Illness [Unknown]
  - Diarrhoea [Unknown]
  - Dizziness [Unknown]
  - Rash [Unknown]
  - Urticaria [Not Recovered/Not Resolved]
  - Drug ineffective [Unknown]

NARRATIVE: CASE EVENT DATE: 20190613
